FAERS Safety Report 10027389 (Version 2)
Quarter: 2014Q1

REPORT INFORMATION
  Report Type: Spontaneous
  Country: BR (occurrence: BR)
  Receive Date: 20140321
  Receipt Date: 20140321
  Transmission Date: 20141002
  Serious: Yes (Hospitalization)
  Sender: FDA-Public Use
  Company Number: BR-UCBSA-110030

PATIENT
  Age: 32 Year
  Sex: Female
  Weight: 76 kg

DRUGS (19)
  1. CIMZIA [Suspect]
     Indication: RHEUMATOID ARTHRITIS
     Dosage: 200 MG/ML
     Route: 058
     Dates: start: 20140210
  2. CIMZIA [Suspect]
     Indication: RHEUMATOID ARTHRITIS
     Dosage: 200  MG/ML
     Route: 058
     Dates: start: 20131107
  3. OMEPRAZOLE [Suspect]
     Dosage: DAILY DOSE: 20 MG
     Route: 048
  4. NIMESULIDE [Suspect]
     Route: 048
  5. ACETAMINOPHEN [Suspect]
     Route: 048
  6. PROCTYL [Suspect]
     Route: 061
  7. LEVOTHYROXINE [Concomitant]
     Dosage: DAILY
     Route: 048
     Dates: start: 2001
  8. DEFLAZACORT [Concomitant]
     Indication: RHEUMATOID ARTHRITIS
     Route: 048
     Dates: start: 2005
  9. METHOTREXATE [Concomitant]
     Indication: RHEUMATOID ARTHRITIS
     Dosage: DOSE:100 MG
     Route: 042
     Dates: start: 2001
  10. METHOTREXATE [Concomitant]
     Indication: RHEUMATOID ARTHRITIS
     Dosage: DOSE:100 MG
     Route: 042
     Dates: start: 2001
  11. METHOTREXATE [Concomitant]
     Indication: RHEUMATOID ARTHRITIS
     Dosage: WEEK
     Route: 058
     Dates: start: 2001
  12. METHOTREXATE [Concomitant]
     Indication: RHEUMATOID ARTHRITIS
     Dosage: WEEK
     Route: 058
     Dates: start: 2001
  13. METHOTREXATE [Concomitant]
     Indication: RHEUMATOID ARTHRITIS
     Dosage: 0.8 MG
     Route: 058
  14. METHOTREXATE [Concomitant]
     Indication: RHEUMATOID ARTHRITIS
     Dosage: 0.8 MG
     Route: 058
  15. METHOTREXATE [Concomitant]
     Indication: RHEUMATOID ARTHRITIS
     Dosage: 50 MG
     Route: 058
  16. METHOTREXATE [Concomitant]
     Indication: RHEUMATOID ARTHRITIS
     Dosage: 50 MG
     Route: 058
  17. SELOKEN [Concomitant]
     Indication: HYPERTENSION
     Dosage: TOTAL DAILY DOSE: 100 MG: CONTROL RELEASE
     Route: 048
     Dates: start: 2001
  18. DICLOFENAC [Concomitant]
     Indication: PAIN
     Dosage: DOSE:10 MG
  19. FOLIC ACID [Concomitant]

REACTIONS (4)
  - Haemorrhoids [Recovered/Resolved]
  - Pain in extremity [Not Recovered/Not Resolved]
  - Local swelling [Not Recovered/Not Resolved]
  - Drug dose omission [Not Recovered/Not Resolved]
